FAERS Safety Report 12120884 (Version 1)
Quarter: 2016Q1

REPORT INFORMATION
  Report Type: Spontaneous
  Country: US (occurrence: US)
  Receive Date: 20160226
  Receipt Date: 20160226
  Transmission Date: 20160526
  Serious: No
  Sender: FDA-Public Use
  Company Number: US-ALLERGAN-1201021US

PATIENT
  Sex: Male

DRUGS (2)
  1. GLAUCOMA MEDICATIONS [Concomitant]
     Indication: GLAUCOMA
  2. REFRESH OPTIVE [Suspect]
     Active Substance: CARBOXYMETHYLCELLULOSE SODIUM\GLYCERIN
     Indication: DRY EYE
     Dosage: UNK
     Route: 047
     Dates: start: 20120122

REACTIONS (1)
  - Vision blurred [Unknown]
